FAERS Safety Report 10267804 (Version 2)
Quarter: 2014Q2

REPORT INFORMATION
  Report Type: Spontaneous
  Country: PT (occurrence: PT)
  Receive Date: 20140630
  Receipt Date: 20140630
  Transmission Date: 20141212
  Serious: Yes (Death)
  Sender: FDA-Public Use
  Company Number: PT-BAYER-2014-071039

PATIENT
  Sex: Female
  Weight: 40 kg

DRUGS (6)
  1. XARELTO [Suspect]
     Indication: EMBOLISM VENOUS
     Dosage: 20 MG, UNK
     Dates: start: 201403, end: 20140415
  2. XARELTO [Interacting]
     Indication: EMBOLISM VENOUS
  3. ACETYLSALICYLIC ACID (} 100 MG) [Interacting]
     Dosage: 250 OD
     Dates: end: 20140416
  4. ADALGUR [Concomitant]
  5. MULTIVITAMINS [Concomitant]
  6. HEPARIN [Concomitant]
     Dosage: 40 MG, BID
     Dates: start: 20140415, end: 20140416

REACTIONS (1)
  - Subarachnoid haemorrhage [Fatal]
